FAERS Safety Report 6925605-5 (Version None)
Quarter: 2010Q3

REPORT INFORMATION
  Report Type: 
  Country: None (occurrence: None)
  Receive Date: 20100810
  Receipt Date: 20100727
  Transmission Date: 20110219
  Serious: Yes (Other)
  Sender: FDA-Public Use
  Company Number: 7012567

PATIENT
  Sex: Female

DRUGS (11)
  1. REBIF [Suspect]
     Dosage: 44 MCG, 3 IN 1 WK, SUBCUTANEOUS
     Route: 058
     Dates: start: 20090701
  2. BACLOFEN [Concomitant]
  3. PREDNISONE [Concomitant]
  4. DORMONID (MIDAZOLAM) [Concomitant]
  5. DIPIRONE (METAMIZOLE SODIUM) [Concomitant]
  6. CEPHALEXIN [Concomitant]
  7. PRESSAT (AMLODIPINE) [Concomitant]
  8. RETEMIC (OXYBUTYNIN HYDROCHLORIDE) [Concomitant]
  9. CEWIN (ASCORBIC ACID) [Concomitant]
  10. CITALOPRAM HYDROBROMIDE [Concomitant]
  11. ATENOLOL [Concomitant]

REACTIONS (7)
  - BACK PAIN [None]
  - INJECTION SITE HAEMATOMA [None]
  - RENAL SURGERY [None]
  - SCAB [None]
  - TREMOR [None]
  - URINARY INCONTINENCE [None]
  - URINARY TRACT INFECTION [None]
